FAERS Safety Report 5949937-2 (Version None)
Quarter: 2008Q4

REPORT INFORMATION
  Report Type: 
  Country: None (occurrence: None)
  Receive Date: 20081112
  Receipt Date: 20081031
  Transmission Date: 20090506
  Serious: No
  Sender: FDA-Public Use
  Company Number: AU-ELI_LILLY_AND_COMPANY-AU200810007425

PATIENT
  Age: 86 Year
  Sex: Male

DRUGS (3)
  1. ZYPREXA [Suspect]
     Dosage: 5 MG, EACH MORNING
     Route: 048
     Dates: start: 20081027
  2. ZYPREXA [Suspect]
     Dosage: 10 MG, OTHER
     Route: 048
     Dates: start: 20081027
  3. WARFARIN SODIUM [Concomitant]

REACTIONS (2)
  - DRUG INTERACTION [None]
  - INTERNATIONAL NORMALISED RATIO INCREASED [None]
